FAERS Safety Report 17404942 (Version 2)
Quarter: 2020Q1

REPORT INFORMATION
  Report Type: Spontaneous
  Country: BR (occurrence: BR)
  Receive Date: 20200211
  Receipt Date: 20200323
  Transmission Date: 20200409
  Serious: Yes (Other)
  Sender: FDA-Public Use
  Company Number: BR-AMGEN-BRASP2019044834

PATIENT
  Age: 30 Year
  Sex: Male
  Weight: 85.4 kg

DRUGS (3)
  1. SULFASALAZINE. [Concomitant]
     Active Substance: SULFASALAZINE
     Indication: ANKYLOSING SPONDYLITIS
     Dosage: 1 G, TWICE A DAY (IN THE MORNING AND NIGHT)
     Dates: start: 2017
  2. ENBREL [Suspect]
     Active Substance: ETANERCEPT
     Dosage: 50 MILLIGRAM, QWK
     Route: 058
     Dates: start: 20190304
  3. ENBREL [Suspect]
     Active Substance: ETANERCEPT
     Indication: ANKYLOSING SPONDYLITIS
     Dosage: UNK
     Route: 065
     Dates: start: 2018

REACTIONS (14)
  - Somnolence [Not Recovered/Not Resolved]
  - Dizziness [Not Recovered/Not Resolved]
  - Skin discolouration [Recovered/Resolved]
  - Asthenia [Unknown]
  - Erectile dysfunction [Unknown]
  - Pain [Unknown]
  - Pain in extremity [Unknown]
  - Sciatic nerve neuropathy [Unknown]
  - Fatigue [Unknown]
  - Pruritus [Recovered/Resolved]
  - Apnoea [Unknown]
  - Dyspnoea [Unknown]
  - Muscular weakness [Unknown]
  - Iron deficiency [Unknown]

NARRATIVE: CASE EVENT DATE: 20190304
